FAERS Safety Report 16028753 (Version 1)
Quarter: 2019Q1

REPORT INFORMATION
  Report Type: Spontaneous
  Country: US (occurrence: US)
  Receive Date: 20190204
  Receipt Date: 20190204
  Transmission Date: 20190418
  Serious: Yes (Hospitalization)
  Sender: FDA-Public Use
  Company Number: None

PATIENT
  Age: 75 Year
  Sex: Female

DRUGS (17)
  1. DUONEB [Concomitant]
     Active Substance: ALBUTEROL SULFATE\IPRATROPIUM BROMIDE
  2. WARFARIN [Concomitant]
     Active Substance: WARFARIN
  3. NYSTATIN ORAL SUSP [Concomitant]
  4. RESTASIS [Concomitant]
     Active Substance: CYCLOSPORINE
  5. ADEMPAS [Suspect]
     Active Substance: RIOCIGUAT
     Indication: PULMONARY ARTERIAL HYPERTENSION
     Route: 048
     Dates: start: 201410, end: 201812
  6. SENNA-S [Concomitant]
     Active Substance: DOCUSATE SODIUM\SENNOSIDES
  7. ROXANOL [Concomitant]
     Active Substance: MORPHINE SULFATE
  8. VITAMIN D2 [Concomitant]
     Active Substance: ERGOCALCIFEROL
  9. DUCLERA [Concomitant]
  10. DILTIAZEM. [Concomitant]
     Active Substance: DILTIAZEM
  11. DIGOXIN. [Concomitant]
     Active Substance: DIGOXIN
  12. PERCOCET [Concomitant]
     Active Substance: ACETAMINOPHEN\OXYCODONE HYDROCHLORIDE
  13. POTASSIUM CHLORIDE. [Concomitant]
     Active Substance: POTASSIUM CHLORIDE
  14. COLCHICINE. [Concomitant]
     Active Substance: COLCHICINE
  15. PRAVASTATIN. [Concomitant]
     Active Substance: PRAVASTATIN
  16. TORSEMIDE. [Concomitant]
     Active Substance: TORSEMIDE
  17. ATIVAN [Suspect]
     Active Substance: LORAZEPAM

REACTIONS (4)
  - Infective exacerbation of bronchiectasis [None]
  - Hypotension [None]
  - Unevaluable event [None]
  - Pulmonary hypertension [None]

NARRATIVE: CASE EVENT DATE: 20181114
